FAERS Safety Report 7414843-3 (Version None)
Quarter: 2011Q2

REPORT INFORMATION
  Report Type: 
  Country: None (occurrence: None)
  Receive Date: 20110414
  Receipt Date: 20110411
  Transmission Date: 20111010
  Serious: Yes (Disabling, Other)
  Sender: FDA-Public Use
  Company Number: US-PFIZER INC-2011023092

PATIENT
  Sex: Male

DRUGS (3)
  1. METHOTREXATE [Suspect]
     Dosage: UNK
  2. PREDNISONE [Suspect]
     Dosage: UNK
  3. LIPITOR [Suspect]
     Dosage: UNK
     Dates: start: 20040101

REACTIONS (3)
  - DIABETES MELLITUS [None]
  - INCLUSION BODY MYOSITIS [None]
  - POLYMYOSITIS [None]
